FAERS Safety Report 4417915-0 (Version None)
Quarter: 2004Q2

REPORT INFORMATION
  Report Type: 
  Country: None (occurrence: None)
  Receive Date: 20040622
  Receipt Date: 20030610
  Transmission Date: 20050107
  Serious: Yes (Other)
  Sender: FDA-Public Use
  Company Number: 332033

PATIENT
  Age: 62 Year
  Sex: Female
  Weight: 121.1 kg

DRUGS (5)
  1. XELODA [Suspect]
  2. VERAPAMIL [Concomitant]
  3. K-DUR 10 [Concomitant]
  4. VIOXX [Concomitant]
  5. HYDRODIURIL [Concomitant]

REACTIONS (1)
  - LACRIMATION INCREASED [None]
